FAERS Safety Report 6233005-9 (Version None)
Quarter: 2009Q2

REPORT INFORMATION
  Report Type: 
  Country: None (occurrence: None)
  Receive Date: 20090617
  Receipt Date: 20090610
  Transmission Date: 20091009
  Serious: Yes (Other)
  Sender: FDA-Public Use
  Company Number: A0790138A

PATIENT
  Age: 45 Year
  Sex: Male

DRUGS (9)
  1. IMITREX [Suspect]
     Indication: MIGRAINE
     Dosage: 6MG AS REQUIRED
     Route: 058
     Dates: start: 19920101
  2. TREXIMET [Suspect]
     Indication: MIGRAINE
     Dosage: 1TAB AS REQUIRED
     Route: 048
     Dates: start: 20090101
  3. METHADONE [Concomitant]
  4. GEMFIBROZIL [Concomitant]
  5. OXYCODONE [Concomitant]
  6. PROAIR HFA [Concomitant]
  7. AMITRIPTYLINE [Concomitant]
  8. DIAZEPAM [Concomitant]
  9. NEXIUM [Concomitant]

REACTIONS (8)
  - DRUG INEFFECTIVE [None]
  - FOREIGN BODY TRAUMA [None]
  - LOSS OF CONSCIOUSNESS [None]
  - MIGRAINE [None]
  - PRODUCT QUALITY ISSUE [None]
  - VISUAL IMPAIRMENT [None]
  - VOMITING [None]
  - WEIGHT DECREASED [None]
